FAERS Safety Report 5239050-4 (Version None)
Quarter: 2007Q1

REPORT INFORMATION
  Report Type: 
  Country: None (occurrence: None)
  Receive Date: 20061208
  Receipt Date: 20050628
  Transmission Date: 20070707
  Serious: Yes (Other)
  Sender: FDA-Public Use
  Company Number: 2005UW09788

PATIENT
  Age: 59 Year
  Sex: Female

DRUGS (1)
  1. CRESTOR [Suspect]
     Indication: PROPHYLAXIS
     Dosage: 10 MG PO
     Route: 048

REACTIONS (4)
  - FATIGUE [None]
  - HEADACHE [None]
  - INCREASED APPETITE [None]
  - MYALGIA [None]
